FAERS Safety Report 18920415 (Version 2)
Quarter: 2021Q1

REPORT INFORMATION
  Report Type: Other
  Country: GB (occurrence: GB)
  Receive Date: 20210222
  Receipt Date: 20210330
  Transmission Date: 20210420
  Serious: Yes (Other)
  Sender: FDA-Public Use
  Company Number: GB-CELLTRION INC.-2021GB001904

PATIENT

DRUGS (12)
  1. REMSIMA [Suspect]
     Active Substance: INFLIXIMAB
     Dosage: 375 MG
     Route: 065
  2. WATER FOR INJECTIONS [Suspect]
     Active Substance: WATER
     Dosage: UNK
     Route: 065
  3. WATER FOR INJECTIONS [Suspect]
     Active Substance: WATER
     Dosage: UNK
     Route: 065
  4. SODIUM CHLORIDE. [Suspect]
     Active Substance: SODIUM CHLORIDE
     Dosage: UNK
     Route: 065
  5. SODIUM CHLORIDE. [Suspect]
     Active Substance: SODIUM CHLORIDE
     Dosage: UNK
     Route: 065
  6. REMSIMA [Suspect]
     Active Substance: INFLIXIMAB
     Indication: PRODUCT USED FOR UNKNOWN INDICATION
     Dosage: 350 MG
     Route: 065
  7. WATER FOR INJECTIONS [Suspect]
     Active Substance: WATER
     Dosage: UNK
     Route: 065
  8. WATER FOR INJECTIONS [Suspect]
     Active Substance: WATER
     Indication: MEDICATION DILUTION
     Dosage: UNK
     Route: 065
  9. SODIUM CHLORIDE. [Suspect]
     Active Substance: SODIUM CHLORIDE
     Indication: MEDICATION DILUTION
     Dosage: UNK
     Route: 065
  10. SODIUM CHLORIDE. [Suspect]
     Active Substance: SODIUM CHLORIDE
     Dosage: UNK
     Route: 065
  11. REMSIMA [Suspect]
     Active Substance: INFLIXIMAB
     Dosage: 350 MG
     Route: 065
  12. REMSIMA [Suspect]
     Active Substance: INFLIXIMAB
     Dosage: 375 MG
     Route: 065

REACTIONS (4)
  - Abdominal distension [Unknown]
  - Haematochezia [Unknown]
  - Diarrhoea [Unknown]
  - Abdominal distension [Unknown]

NARRATIVE: CASE EVENT DATE: 202008
